FAERS Safety Report 22400493 (Version 1)
Quarter: 2023Q2

REPORT INFORMATION
  Report Type: Report from Study
  Country: PE (occurrence: PE)
  Receive Date: 20230602
  Receipt Date: 20230602
  Transmission Date: 20230721
  Serious: Yes (Death, Other)
  Sender: FDA-Public Use
  Company Number: PE-BAYER-2023A076355

PATIENT
  Age: 82 Year
  Sex: Male

DRUGS (1)
  1. RIVAROXABAN [Suspect]
     Active Substance: RIVAROXABAN
     Indication: Atrial fibrillation
     Dosage: 20 MG, QD , THERAPY END DATE: /MAY/2023
     Route: 048
     Dates: start: 20220202

REACTIONS (3)
  - Death [Fatal]
  - General physical health deterioration [Unknown]
  - Renal cancer [Unknown]

NARRATIVE: CASE EVENT DATE: 20230501
